APPROVED DRUG PRODUCT: OCTREOTIDE ACETATE
Active Ingredient: OCTREOTIDE ACETATE
Strength: EQ 20MG BASE/VIAL
Dosage Form/Route: INJECTABLE;INJECTION
Application: A216589 | Product #002 | TE Code: AB
Applicant: MYLAN LABORATORIES LTD
Approved: Dec 12, 2025 | RLD: No | RS: No | Type: RX

EXCLUSIVITY:
Code: CGT | Date: Jul 27, 2026